FAERS Safety Report 5269234-0 (Version None)
Quarter: 2007Q1

REPORT INFORMATION
  Report Type: 
  Country: None (occurrence: None)
  Receive Date: 20070319
  Receipt Date: 20070309
  Transmission Date: 20070707
  Serious: Yes (Other)
  Sender: FDA-Public Use
  Company Number: BG-ABBOTT-07P-022-0361577-00

PATIENT
  Age: 42 Year
  Sex: Male

DRUGS (2)
  1. DEPAKENE [Suspect]
     Indication: BIPOLAR DISORDER
     Route: 048
     Dates: start: 20070104
  2. OLANZAPINE [Concomitant]
     Indication: BIPOLAR DISORDER
     Route: 048
     Dates: start: 20070104

REACTIONS (2)
  - ERYTHEMA [None]
  - RASH PAPULAR [None]
